FAERS Safety Report 12886141 (Version 1)
Quarter: 2016Q4

REPORT INFORMATION
  Report Type: Report from Study
  Country: CA (occurrence: CA)
  Receive Date: 20161026
  Receipt Date: 20161026
  Transmission Date: 20170207
  Serious: Yes (Other)
  Sender: FDA-Public Use
  Company Number: PHHY2016CA110853

PATIENT
  Sex: Female

DRUGS (2)
  1. AFINITOR [Suspect]
     Active Substance: EVEROLIMUS
     Indication: BREAST CANCER
     Dosage: 10 MG, QD
     Route: 048
     Dates: start: 20160705
  2. AFINITOR [Suspect]
     Active Substance: EVEROLIMUS
     Dosage: 5 MG, QD
     Route: 048

REACTIONS (9)
  - Pneumonitis [Unknown]
  - Pneumonia [Unknown]
  - Constipation [Unknown]
  - Mouth ulceration [Unknown]
  - Rash [Unknown]
  - Pulmonary oedema [Unknown]
  - Dyspnoea [Unknown]
  - Abscess oral [Unknown]
  - Oral pain [Unknown]
